FAERS Safety Report 6291504-8 (Version None)
Quarter: 2009Q3

REPORT INFORMATION
  Report Type: 
  Country: None (occurrence: None)
  Receive Date: 20090730
  Receipt Date: 20090723
  Transmission Date: 20100115
  Serious: No
  Sender: FDA-Public Use
  Company Number: US-BAYER-200928094NA

PATIENT
  Age: 35 Year
  Sex: Male
  Weight: 84 kg

DRUGS (2)
  1. MAGNEVIST [Suspect]
     Indication: NUCLEAR MAGNETIC RESONANCE IMAGING
     Dosage: TOTAL DAILY DOSE: 17 ML  UNIT DOSE: 20 ML
     Route: 042
     Dates: start: 20090722, end: 20090722
  2. DILANTIN [Concomitant]

REACTIONS (2)
  - PRURITUS [None]
  - URTICARIA [None]
